FAERS Safety Report 23672235 (Version 1)
Quarter: 2024Q1

REPORT INFORMATION
  Report Type: Spontaneous
  Country: TR (occurrence: TR)
  Receive Date: 20240326
  Receipt Date: 20240326
  Transmission Date: 20240409
  Serious: Yes (Death)
  Sender: FDA-Public Use
  Company Number: TR-CHEPLA-2024003718

PATIENT
  Age: 71 Year
  Sex: Male

DRUGS (9)
  1. CLONAZEPAM [Suspect]
     Active Substance: CLONAZEPAM
     Indication: Pneumonia
  2. CLONAZEPAM [Suspect]
     Active Substance: CLONAZEPAM
     Indication: Opsoclonus myoclonus
  3. Favipiravir prednisolone [Concomitant]
     Dosage: DAILY DOSE: 80 GRAM
  4. Favipiravir prednisolone [Concomitant]
     Dosage: FAVIPIRAVIR TREATMENT WAS DISCONTINUED ON THE 5THDAY?DAILY DOSE: 80 GRAM
  5. ENOXAPARIN [Concomitant]
     Active Substance: ENOXAPARIN
     Dosage: 6000 UNITS TWICE A DAY?DAILY DOSE: 12000 IU (INTERNATIONAL UNIT)
  6. CEFEPIME [Concomitant]
     Active Substance: CEFEPIME HYDROCHLORIDE
     Dosage: 2 GM TWICE A DAY ?DAILY DOSE: 4 GRAM
  7. Prednol [Concomitant]
  8. Prednol [Concomitant]
     Dosage: REDUCED TO 40 GM/DAY ON THE 5TH DAY.?DAILY DOSE: 40 GRAM
  9. LEVOFLOXACIN [Concomitant]
     Active Substance: LEVOFLOXACIN

REACTIONS (2)
  - Respiratory arrest [Fatal]
  - Off label use [Unknown]
